FAERS Safety Report 16389974 (Version 1)
Quarter: 2019Q2

REPORT INFORMATION
  Report Type: Report from Study
  Country: ES (occurrence: ES)
  Receive Date: 20190604
  Receipt Date: 20190604
  Transmission Date: 20190711
  Serious: Yes (Hospitalization)
  Sender: FDA-Public Use
  Company Number: ES-BAUSCH-BL-2019-016165

PATIENT
  Age: 2 Year
  Sex: Female

DRUGS (2)
  1. PREDNISOLONA [Suspect]
     Active Substance: PREDNISOLONE
     Indication: BRONCHITIS
     Route: 065
     Dates: start: 201702, end: 20170216
  2. IBUPROFENO [Interacting]
     Active Substance: IBUPROFEN
     Indication: BRONCHITIS
     Route: 065
     Dates: start: 201702, end: 20170216

REACTIONS (3)
  - Melaena [Recovered/Resolved]
  - Gastritis [Recovering/Resolving]
  - Haematemesis [Recovering/Resolving]

NARRATIVE: CASE EVENT DATE: 20170216
